FAERS Safety Report 5867039-0 (Version None)
Quarter: 2008Q3

REPORT INFORMATION
  Report Type: 
  Country: None (occurrence: None)
  Receive Date: 20080902
  Receipt Date: 20080901
  Transmission Date: 20090109
  Serious: Yes (Other)
  Sender: FDA-Public Use
  Company Number: B0483218A

PATIENT
  Age: 49 Year
  Sex: Female

DRUGS (2)
  1. PAXIL [Suspect]
     Indication: DEPRESSION
     Dosage: 10MG PER DAY
     Route: 048
     Dates: start: 20070101, end: 20070101
  2. FLUVOXAMINE MALEATE [Concomitant]
     Indication: DEPRESSION
     Dosage: 50MG PER DAY

REACTIONS (5)
  - ACTIVATION SYNDROME [None]
  - CHEST DISCOMFORT [None]
  - DISSOCIATION [None]
  - HYPOAESTHESIA [None]
  - INSOMNIA [None]
